FAERS Safety Report 5241791-X (Version None)
Quarter: 2007Q1

REPORT INFORMATION
  Report Type: 
  Country: None (occurrence: None)
  Receive Date: 20070220
  Receipt Date: 20070213
  Transmission Date: 20070707
  Serious: Yes (Hospitalization)
  Sender: FDA-Public Use
  Company Number: GB-ROCHE-482592

PATIENT
  Age: 59 Year
  Sex: Male
  Weight: 87 kg

DRUGS (4)
  1. RIBAVIRIN [Suspect]
     Indication: HEPATITIS C
     Route: 048
     Dates: start: 20070104, end: 20070201
  2. PEG-INTERFERON ALFA 2A (RO 25-8310) [Suspect]
     Indication: HEPATITIS C
     Route: 058
     Dates: start: 20070104
  3. BLINDED VX-950 [Suspect]
     Indication: HEPATITIS C
     Route: 048
     Dates: start: 20070104
  4. ASPIRIN [Concomitant]
     Route: 048
     Dates: start: 20070129, end: 20070131

REACTIONS (1)
  - HAEMORRHAGE [None]
